FAERS Safety Report 7389125-9 (Version None)
Quarter: 2011Q2

REPORT INFORMATION
  Report Type: 
  Country: None (occurrence: None)
  Receive Date: 20110401
  Receipt Date: 20110324
  Transmission Date: 20111010
  Serious: Yes (Death)
  Sender: FDA-Public Use
  Company Number: VN-ROCHE-765866

PATIENT
  Age: 52 Year
  Sex: Male

DRUGS (1)
  1. TAMIFLU [Suspect]
     Indication: H1N1 INFLUENZA
     Dosage: INDICATION REPORTES: A/H1N1 INFLUENZA
     Route: 048
     Dates: start: 20110228

REACTIONS (2)
  - RESPIRATORY FAILURE [None]
  - PNEUMONIA [None]
